FAERS Safety Report 4590817-5 (Version None)
Quarter: 2005Q1

REPORT INFORMATION
  Report Type: 
  Country: None (occurrence: None)
  Receive Date: 20050222
  Receipt Date: 20050222
  Transmission Date: 20050727
  Serious: Yes (Hospitalization)
  Sender: FDA-Public Use
  Company Number: None

PATIENT
  Age: 56 Year
  Sex: Male
  Weight: 112.5 kg

DRUGS (4)
  1. BORTEZOMIB 3.5 MG/VIAL MILLENNIUM [Suspect]
     Indication: MULTIPLE MYELOMA
     Dosage: 3.5 MG/M2 IV BOLUS
     Route: 040
     Dates: start: 20041116, end: 20050128
  2. DESYREL [Concomitant]
  3. WELLBUTRIN [Concomitant]
  4. COMPAZINE [Concomitant]

REACTIONS (7)
  - DEVICE FAILURE [None]
  - FAILURE OF IMPLANT [None]
  - FRACTURE NONUNION [None]
  - MIGRATION OF IMPLANT [None]
  - PAIN IN EXTREMITY [None]
  - POST PROCEDURAL HAEMATOMA [None]
  - STAPHYLOCOCCAL INFECTION [None]
